FAERS Safety Report 5731822-2 (Version None)
Quarter: 2008Q2

REPORT INFORMATION
  Report Type: 
  Country: None (occurrence: None)
  Receive Date: 20080508
  Receipt Date: 20080502
  Transmission Date: 20081010
  Serious: Yes (Hospitalization)
  Sender: FDA-Public Use
  Company Number: A0724568A

PATIENT
  Age: 65 Year
  Sex: Female

DRUGS (13)
  1. LAMICTAL [Suspect]
     Indication: EPILEPSY
     Dosage: 250MG TWICE PER DAY
     Route: 048
     Dates: start: 20060101
  2. AZITHROMYCIN [Concomitant]
  3. PREMARIN [Concomitant]
  4. MICARDIS HCT [Concomitant]
  5. FLONASE [Concomitant]
  6. SYNTHROID [Concomitant]
  7. FOSAMAX [Concomitant]
  8. ALBUTEROL [Concomitant]
  9. ZANTAC [Concomitant]
  10. CLARITIN [Concomitant]
  11. ZOCOR [Concomitant]
  12. OSCAL [Concomitant]
  13. TYLENOL [Concomitant]

REACTIONS (12)
  - ABNORMAL BEHAVIOUR [None]
  - ADVERSE EVENT [None]
  - ANGER [None]
  - BALANCE DISORDER [None]
  - CONVULSION [None]
  - COORDINATION ABNORMAL [None]
  - DISTURBANCE IN ATTENTION [None]
  - FALL [None]
  - GAIT DISTURBANCE [None]
  - HEAD INJURY [None]
  - IRRITABILITY [None]
  - RESPIRATORY TRACT INFECTION [None]
